FAERS Safety Report 8872727 (Version 1)
Quarter: 2012Q4

REPORT INFORMATION
  Report Type: 
  Country: US (occurrence: US)
  Receive Date: 20121026
  Receipt Date: 20121026
  Transmission Date: 20130627
  Serious: No
  Sender: FDA-Public Use
  Company Number: US-AMGEN-USASP2012042017

PATIENT
  Age: 50 Year
  Sex: Male

DRUGS (7)
  1. ENBREL [Suspect]
     Indication: PRODUCT USED FOR UNKNOWN INDICATION
     Dosage: 50 mg, qwk
     Route: 058
  2. CELEBREX [Concomitant]
     Dosage: 400 mg, UNK
  3. METFORMIN [Concomitant]
     Dosage: 500 mg, UNK
  4. LISINOPRIL [Concomitant]
     Dosage: 2.5 mg, UNK
  5. SIMVASTATIN [Concomitant]
     Dosage: 40 mg, UNK
  6. NISTATIN [Concomitant]
     Dosage: 100000 UNK, UNK
  7. GENTIANA VIOLET [Concomitant]
     Dosage: 1 %, UNK

REACTIONS (1)
  - Injection site reaction [Unknown]
